FAERS Safety Report 16107285 (Version 2)
Quarter: 2019Q1

REPORT INFORMATION
  Report Type: Spontaneous
  Country: FR (occurrence: FR)
  Receive Date: 20190322
  Receipt Date: 20190327
  Transmission Date: 20190418
  Serious: Yes (Death)
  Sender: FDA-Public Use
  Company Number: FR-PFIZER INC-2019121733

PATIENT
  Age: 48 Year
  Sex: Male

DRUGS (8)
  1. NORADRENALINE HOSPIRA [Suspect]
     Active Substance: NOREPINEPHRINE BITARTRATE
     Indication: CAPNOCYTOPHAGA SEPSIS
  2. CLINDAMYCIN HCL [Suspect]
     Active Substance: CLINDAMYCIN HYDROCHLORIDE
     Indication: SEPTIC SHOCK
     Dosage: UNK
  3. CLINDAMYCIN HCL [Suspect]
     Active Substance: CLINDAMYCIN HYDROCHLORIDE
     Indication: CAPNOCYTOPHAGA SEPSIS
  4. AMOXICILLIN/CLAVULANIC ACID [Suspect]
     Active Substance: AMOXICILLIN\CLAVULANIC ACID
     Indication: SEPTIC SHOCK
     Dosage: UNK
  5. GENTAMICIN. [Suspect]
     Active Substance: GENTAMICIN
     Indication: SEPTIC SHOCK
     Dosage: UNK
  6. NORADRENALINE HOSPIRA [Suspect]
     Active Substance: NOREPINEPHRINE BITARTRATE
     Indication: SEPTIC SHOCK
     Dosage: UNK
  7. GENTAMICIN. [Suspect]
     Active Substance: GENTAMICIN
     Indication: CAPNOCYTOPHAGA SEPSIS
  8. AMOXICILLIN/CLAVULANIC ACID [Suspect]
     Active Substance: AMOXICILLIN\CLAVULANIC ACID
     Indication: CAPNOCYTOPHAGA SEPSIS

REACTIONS (1)
  - Drug ineffective [Fatal]
